FAERS Safety Report 4374463-4 (Version None)
Quarter: 2004Q2

REPORT INFORMATION
  Report Type: 
  Country: None (occurrence: None)
  Receive Date: 20040602
  Receipt Date: 20040309
  Transmission Date: 20050107
  Serious: No
  Sender: FDA-Public Use
  Company Number: 200414991BWH

PATIENT
  Age: 73 Year
  Sex: Male
  Weight: 87.5442 kg

DRUGS (3)
  1. LEVITRA [Suspect]
     Indication: ERECTILE DYSFUNCTION
     Dosage: 10 MG, QD, ORAL
     Route: 048
     Dates: start: 20040307
  2. LIPITOR [Concomitant]
  3. HYDROCHLOROTHIAZIDE [Concomitant]

REACTIONS (1)
  - ERECTILE DYSFUNCTION [None]
